FAERS Safety Report 9420097 (Version 1)
Quarter: 2013Q3

REPORT INFORMATION
  Report Type: Spontaneous
  Country: GR (occurrence: GR)
  Receive Date: 20130725
  Receipt Date: 20130725
  Transmission Date: 20140515
  Serious: Yes (Death, Hospitalization, Other)
  Sender: FDA-Public Use
  Company Number: GR-PFIZER INC-2013214170

PATIENT
  Age: 46 Year
  Sex: Male

DRUGS (1)
  1. METHYLPREDNISOLONE [Suspect]
     Dosage: UNK
     Route: 042

REACTIONS (3)
  - Death [Fatal]
  - Respiratory failure [Unknown]
  - Quadriparesis [Unknown]
